FAERS Safety Report 18257691 (Version 1)
Quarter: 2020Q3

REPORT INFORMATION
  Report Type: Spontaneous
  Country: US (occurrence: US)
  Receive Date: 20200911
  Receipt Date: 20200911
  Transmission Date: 20201103
  Serious: No
  Sender: FDA-Public Use
  Company Number: US-009507513-2009USA004385

PATIENT
  Sex: Female
  Weight: 55.78 kg

DRUGS (2)
  1. LENVATINIB MESYLATE [Suspect]
     Active Substance: LENVATINIB MESYLATE
     Indication: ENDOMETRIAL NEOPLASM
     Dosage: 10 MILLIGRAM, QD
     Route: 048
     Dates: start: 20200625, end: 20200904
  2. KEYTRUDA [Suspect]
     Active Substance: PEMBROLIZUMAB
     Indication: ENDOMETRIAL NEOPLASM
     Dosage: UNK
     Dates: end: 20200904

REACTIONS (4)
  - Gait disturbance [Unknown]
  - Bone disorder [Unknown]
  - Arthropathy [Unknown]
  - Drug ineffective [Unknown]

NARRATIVE: CASE EVENT DATE: 2020
